FAERS Safety Report 9714125 (Version 1)
Quarter: 2013Q4

REPORT INFORMATION
  Report Type: Spontaneous
  Country: US (occurrence: US)
  Receive Date: 20131126
  Receipt Date: 20131126
  Transmission Date: 20140711
  Serious: No
  Sender: FDA-Public Use
  Company Number: US-GILEAD-2008-0018921

PATIENT
  Sex: Female
  Weight: 79.83 kg

DRUGS (23)
  1. LETAIRIS [Suspect]
     Indication: PULMONARY ARTERIAL HYPERTENSION
     Route: 048
     Dates: start: 20070823
  2. REVATIO [Concomitant]
  3. COUMADIN [Concomitant]
  4. REMODULIN [Concomitant]
  5. DIGOXIN [Concomitant]
  6. POTASSIUM CHLORIDE [Concomitant]
  7. ADVAIR DISKUS [Concomitant]
  8. PAMINE FORTE [Concomitant]
  9. METHIMAZOLE [Concomitant]
  10. AMITRIPTYLINE [Concomitant]
     Route: 061
  11. GABAPENTIN [Concomitant]
  12. KETAMINE [Concomitant]
  13. LECITHIN [Concomitant]
  14. LIDOCAINE [Concomitant]
  15. POLOXAMER [Concomitant]
  16. RESTASIS EYE EMULS [Concomitant]
  17. IMODIUM AD [Concomitant]
  18. TYLENOL EX-STRENGTH PM [Concomitant]
  19. PREVACID [Concomitant]
  20. SINGULAIR [Concomitant]
  21. ALDACTONE [Concomitant]
  22. LASIX [Concomitant]
  23. CLARITIN [Concomitant]

REACTIONS (1)
  - Rash [Recovered/Resolved]
